FAERS Safety Report 16891736 (Version 1)
Quarter: 2019Q4

REPORT INFORMATION
  Report Type: Spontaneous
  Country: US (occurrence: US)
  Receive Date: 20190813
  Receipt Date: 20190813
  Transmission Date: 20200122
  Serious: No
  Sender: FDA-Public Use
  Company Number: None

PATIENT

DRUGS (2)
  1. PROPRANOLOL [Suspect]
     Active Substance: PROPRANOLOL HYDROCHLORIDE
  2. LORATADINE. [Suspect]
     Active Substance: LORATADINE

REACTIONS (7)
  - Wrong product administered [None]
  - Product label on wrong product [None]
  - Somnolence [None]
  - Headache [None]
  - Abdominal pain upper [None]
  - Product dispensing error [None]
  - Sluggishness [None]
